FAERS Safety Report 11023073 (Version 3)
Quarter: 2015Q4

REPORT INFORMATION
  Report Type: Spontaneous
  Country: US (occurrence: US)
  Receive Date: 20150413
  Receipt Date: 20151110
  Transmission Date: 20160304
  Serious: Yes (Other)
  Sender: FDA-Public Use
  Company Number: US-BAYER-2015-128856

PATIENT
  Age: 68 Year
  Sex: Male
  Weight: 93 kg

DRUGS (6)
  1. ALEVE PM [Suspect]
     Active Substance: DIPHENHYDRAMINE HYDROCHLORIDE\NAPROXEN SODIUM
     Indication: SLEEP DISORDER THERAPY
     Dosage: 1 DF, HS
     Route: 048
     Dates: start: 201411
  2. BAYER LOW DOSE [Suspect]
     Active Substance: ASPIRIN
     Dosage: 1 DF, QD
     Route: 048
     Dates: end: 2015
  3. ALEVE [Suspect]
     Active Substance: NAPROXEN SODIUM
     Indication: ANALGESIC THERAPY
     Dosage: 2 DF, QD
     Route: 048
  4. CALCIUM [Concomitant]
     Active Substance: CALCIUM
  5. METOPROLOL [Concomitant]
     Active Substance: METOPROLOL
  6. ALEVE [Suspect]
     Active Substance: NAPROXEN SODIUM
     Indication: ANALGESIC THERAPY
     Dosage: 3 DF, QD
     Route: 048

REACTIONS (4)
  - Extra dose administered [Unknown]
  - Incorrect drug administration duration [Recovered/Resolved]
  - Rectal haemorrhage [Not Recovered/Not Resolved]
  - Haematochezia [Recovered/Resolved]
